FAERS Safety Report 19722680 (Version 1)
Quarter: 2021Q3

REPORT INFORMATION
  Report Type: Spontaneous
  Country: US (occurrence: US)
  Receive Date: 20210819
  Receipt Date: 20210819
  Transmission Date: 20211014
  Serious: Yes (Other)
  Sender: FDA-Public Use
  Company Number: US-MYLANLABS-2021M1053536

PATIENT
  Age: 15 Month
  Sex: Male

DRUGS (6)
  1. COTRIMOXAZOLE [Concomitant]
     Active Substance: SULFAMETHOXAZOLE\TRIMETHOPRIM
     Indication: ANTIBIOTIC THERAPY
     Dosage: UNK
     Route: 065
  2. IMMUNOGLOBULINS NOS [Concomitant]
     Active Substance: IMMUNE GLOBULIN NOS
     Indication: COMBINED IMMUNODEFICIENCY
     Dosage: UNK
     Route: 065
  3. METHYLPREDNISOLONE. [Suspect]
     Active Substance: METHYLPREDNISOLONE
     Indication: HCOV-OC43 INFECTION
     Dosage: UNK
     Route: 065
  4. CIDOFOVIR. [Suspect]
     Active Substance: CIDOFOVIR
     Indication: ANTIVIRAL TREATMENT
     Dosage: UNK
     Route: 065
  5. VANCOMYCIN [Suspect]
     Active Substance: VANCOMYCIN
     Indication: HCOV-OC43 INFECTION
     Dosage: UNK
     Route: 065
  6. MEROPENEM. [Suspect]
     Active Substance: MEROPENEM
     Indication: HCOV-OC43 INFECTION
     Dosage: UNK
     Route: 065

REACTIONS (3)
  - Nephropathy toxic [Unknown]
  - Off label use [Unknown]
  - Acute kidney injury [Unknown]
